FAERS Safety Report 23364756 (Version 1)
Quarter: 2024Q1

REPORT INFORMATION
  Report Type: Report from Study
  Country: CA (occurrence: CA)
  Receive Date: 20240104
  Receipt Date: 20240104
  Transmission Date: 20240409
  Serious: Yes (Hospitalization, Other)
  Sender: FDA-Public Use
  Company Number: CA-ABBVIE-5569973

PATIENT
  Sex: Male

DRUGS (1)
  1. LUPRON [Suspect]
     Active Substance: LEUPROLIDE ACETATE
     Indication: Prostate cancer
     Route: 065
     Dates: start: 20230421

REACTIONS (3)
  - Rectal haemorrhage [Recovering/Resolving]
  - Pulmonary oedema [Unknown]
  - Genital ulceration [Unknown]

NARRATIVE: CASE EVENT DATE: 20230101
